FAERS Safety Report 19727471 (Version 11)
Quarter: 2023Q2

REPORT INFORMATION
  Report Type: Report from Study
  Country: CO (occurrence: CO)
  Receive Date: 20210819
  Receipt Date: 20230412
  Transmission Date: 20230721
  Serious: Yes (Life-Threatening, Other)
  Sender: FDA-Public Use
  Company Number: NVSC2021CO181087

PATIENT
  Sex: Female
  Weight: 58 kg

DRUGS (5)
  1. KISQALI [Suspect]
     Active Substance: RIBOCICLIB
     Indication: Breast cancer metastatic
     Dosage: 600 MG (TABLET OF 200 MG), QD
     Route: 048
     Dates: start: 20210816, end: 202111
  2. KISQALI [Suspect]
     Active Substance: RIBOCICLIB
     Dosage: 600 MG (TABLET OF 200 MG), QD
     Route: 048
  3. KISQALI [Suspect]
     Active Substance: RIBOCICLIB
     Dosage: UNK
     Route: 048
  4. FEMARA [Suspect]
     Active Substance: LETROZOLE
     Indication: Breast cancer metastatic
     Dosage: 2.5 MG, QD
     Route: 048
     Dates: start: 20210816, end: 202111
  5. FEMARA [Suspect]
     Active Substance: LETROZOLE
     Dosage: 2.5 MG, QD
     Route: 048

REACTIONS (17)
  - Near death experience [Unknown]
  - Poisoning [Unknown]
  - Breast pain [Unknown]
  - Abdominal discomfort [Unknown]
  - Discouragement [Unknown]
  - Feeling abnormal [Unknown]
  - Drug intolerance [Unknown]
  - COVID-19 [Unknown]
  - Pain [Unknown]
  - Illness [Unknown]
  - Musculoskeletal chest pain [Unknown]
  - Rash [Unknown]
  - Back pain [Unknown]
  - Headache [Unknown]
  - Dizziness [Unknown]
  - Product availability issue [Unknown]
  - Product supply issue [Unknown]
